FAERS Safety Report 7028795-1 (Version None)
Quarter: 2010Q4

REPORT INFORMATION
  Report Type: 
  Country: None (occurrence: None)
  Receive Date: 20101004
  Receipt Date: 20101004
  Transmission Date: 20110411
  Serious: Yes (Life-Threatening, Hospitalization)
  Sender: FDA-Public Use
  Company Number: None

PATIENT
  Sex: Female
  Weight: 112.0385 kg

DRUGS (1)
  1. LIDOCAINE [Suspect]
     Indication: MUSCULOSKELETAL PAIN
     Dosage: DOCTOR CHOSE AMOIUNT  1 IM, TIME TO INJECT IT
     Route: 030
     Dates: start: 20100928, end: 20100928

REACTIONS (4)
  - BLOOD PRESSURE DECREASED [None]
  - DYSPNOEA [None]
  - URTICARIA [None]
  - VISUAL IMPAIRMENT [None]
